FAERS Safety Report 5975217-5 (Version None)
Quarter: 2008Q4

REPORT INFORMATION
  Report Type: 
  Country: None (occurrence: None)
  Receive Date: 20081202
  Receipt Date: 20080630
  Transmission Date: 20090506
  Serious: No
  Sender: FDA-Public Use
  Company Number: US-BAYER-200812668BCC

PATIENT
  Age: 28 Year
  Sex: Female
  Weight: 104 kg

DRUGS (2)
  1. MIDOL [Suspect]
     Indication: DYSMENORRHOEA
     Dosage: AS USED: 440/220 MG  UNIT DOSE: 220 MG
     Dates: start: 20080629
  2. MIDOL [Suspect]
     Dosage: UNIT DOSE: 220 MG
     Dates: start: 20080629

REACTIONS (3)
  - ABDOMINAL PAIN [None]
  - DIARRHOEA [None]
  - FLATULENCE [None]
